FAERS Safety Report 10517779 (Version 2)
Quarter: 2014Q4

REPORT INFORMATION
  Report Type: Spontaneous
  Country: CN (occurrence: CN)
  Receive Date: 20141015
  Receipt Date: 20141027
  Transmission Date: 20150528
  Serious: Yes (Death, Hospitalization, Other)
  Sender: FDA-Public Use
  Company Number: CN-ROCHE-1472490

PATIENT
  Age: 46 Year
  Sex: Female
  Weight: 50 kg

DRUGS (4)
  1. FLUOROURACIL. [Concomitant]
     Active Substance: FLUOROURACIL
     Indication: COLON CANCER
     Route: 065
     Dates: start: 201404, end: 201407
  2. AVASTIN [Suspect]
     Active Substance: BEVACIZUMAB
     Indication: COLON CANCER
     Dosage: 5 MG/KG
     Route: 042
     Dates: start: 20140420, end: 20140704
  3. AVASTIN [Suspect]
     Active Substance: BEVACIZUMAB
     Indication: ADENOCARCINOMA OF COLON
  4. IRINOTECAN [Concomitant]
     Active Substance: IRINOTECAN
     Indication: COLON CANCER
     Route: 065
     Dates: start: 201404, end: 201407

REACTIONS (6)
  - White blood cell count decreased [Recovered/Resolved]
  - Intestinal fistula [Not Recovered/Not Resolved]
  - Cellulitis [Not Recovered/Not Resolved]
  - Multi-organ failure [Fatal]
  - Pyrexia [Not Recovered/Not Resolved]
  - Intestinal perforation [Unknown]

NARRATIVE: CASE EVENT DATE: 201407
